FAERS Safety Report 16455153 (Version 1)
Quarter: 2019Q2

REPORT INFORMATION
  Report Type: Spontaneous
  Country: PL (occurrence: PL)
  Receive Date: 20190619
  Receipt Date: 20190619
  Transmission Date: 20190711
  Serious: Yes (Hospitalization)
  Sender: FDA-Public Use
  Company Number: PL-ALLERGAN-1925237US

PATIENT
  Sex: Male

DRUGS (2)
  1. BINABIC [Suspect]
     Active Substance: BICALUTAMIDE
     Indication: PROSTATIC ADENOMA
     Route: 048
  2. TRIPTORELIN PAMOATE - BP [Suspect]
     Active Substance: TRIPTORELIN PAMOATE
     Indication: PROSTATIC ADENOMA
     Route: 058

REACTIONS (1)
  - Skin lesion [Recovered/Resolved]

NARRATIVE: CASE EVENT DATE: 20181231
